FAERS Safety Report 8121964-9 (Version None)
Quarter: 2012Q1

REPORT INFORMATION
  Report Type: 
  Country: None (occurrence: None)
  Receive Date: 20120208
  Receipt Date: 20120203
  Transmission Date: 20120608
  Serious: Yes (Other)
  Sender: FDA-Public Use
  Company Number: US-PFIZER INC-2012025868

PATIENT
  Sex: Female
  Weight: 66 kg

DRUGS (5)
  1. ACETYLSALICYLIC ACID [Concomitant]
     Dosage: UNK
  2. PLAVIX [Concomitant]
     Indication: TRANSIENT ISCHAEMIC ATTACK
     Dosage: 75 MG, DAILY
  3. LIPITOR [Suspect]
     Indication: BLOOD CHOLESTEROL INCREASED
     Dosage: 80 MG, DAILY
  4. NEURONTIN [Suspect]
     Dosage: 600 MG, 3X/DAY
  5. ACTONEL [Concomitant]
     Dosage: UNK

REACTIONS (6)
  - UTERINE DISORDER [None]
  - UTERINE NEOPLASM [None]
  - SURGERY [None]
  - UTERINE HAEMORRHAGE [None]
  - BLADDER DISORDER [None]
  - HIATUS HERNIA [None]
